FAERS Safety Report 6219762-6 (Version None)
Quarter: 2009Q2

REPORT INFORMATION
  Report Type: 
  Country: None (occurrence: None)
  Receive Date: 20090609
  Receipt Date: 20090529
  Transmission Date: 20091009
  Serious: Yes (Hospitalization)
  Sender: FDA-Public Use
  Company Number: A0784596A

PATIENT
  Age: 18 Year
  Sex: Female

DRUGS (6)
  1. LAMICTAL [Suspect]
     Indication: DRUG USE FOR UNKNOWN INDICATION
     Dosage: 50MG UNKNOWN
     Route: 048
     Dates: start: 20090508, end: 20090515
  2. KEPPRA [Concomitant]
  3. UNKNOWN MEDICATION [Concomitant]
  4. STEROID [Concomitant]
  5. H2 BLOCKER [Concomitant]
  6. LEUKOTRIENE [Concomitant]

REACTIONS (3)
  - CONDITION AGGRAVATED [None]
  - PRURITUS [None]
  - RASH [None]
